FAERS Safety Report 6928183-X (Version None)
Quarter: 2010Q3

REPORT INFORMATION
  Report Type: 
  Country: None (occurrence: None)
  Receive Date: 20100812
  Receipt Date: 20100728
  Transmission Date: 20110219
  Serious: Yes (Other)
  Sender: FDA-Public Use
  Company Number: 1000015501

PATIENT
  Age: 78 Year
  Sex: Female

DRUGS (12)
  1. MEMANTINE HCL [Suspect]
     Indication: DEMENTIA
     Dosage: 10 MG (10 MG, 1 IN 1 D), ORAL
     Route: 048
     Dates: start: 20100605, end: 20100615
  2. MEMANTINE HCL [Suspect]
     Indication: DEMENTIA
     Dosage: 20 MG (10 MG, 2 IN 1 D), ORAL
     Route: 048
     Dates: start: 20100616, end: 20100628
  3. CIPROFLOXACIN [Suspect]
     Indication: URINARY TRACT INFECTION
     Dosage: 1000 MG (500 MG, 2 IN 1 D), ORAL
     Route: 048
     Dates: start: 20100602, end: 20100611
  4. TAREG (TABLETS) [Suspect]
     Indication: HYPERTENSION
     Dosage: 80 MG (80 MG, 1 IN 1 D), ORAL
     Route: 048
     Dates: end: 20100609
  5. INEXIUM (TABLETS) [Suspect]
     Dosage: 20 MG (20 MG, 1 IN 1 D), ORAL
     Route: 048
     Dates: end: 20100628
  6. DAFLAGAN [Suspect]
     Dosage: 3 GM (1 GM, 3 IN 1 D)
     Dates: end: 20100628
  7. FERROSTRANE (SYRUP) [Suspect]
     Indication: ANAEMIA
     Dosage: 2 DOSAGE FORMS (1 DOSAGE FORMS, 2 IN 1 D), ORAL
     Route: 048
     Dates: end: 20100628
  8. MODIODAL (TABLETS) [Suspect]
     Indication: HYPERSOMNIA
     Dosage: 200 MG (100 MG, 2 IN 1 D), ORAL
     Route: 048
     Dates: start: 20100101
  9. CACIT VITAMINE D3 [Suspect]
     Dosage: ORAL
  10. TRIVASTAL (TABLETS) [Suspect]
     Dosage: 100 MG (50 MG, 1 IN 1 D), ORAL
     Route: 048
     Dates: end: 20100628
  11. STABLON (TABLETS) [Suspect]
     Dosage: 12.5 MG (12.5 MG, 1 IN 1 D), ORAL
     Route: 048
     Dates: end: 20100628
  12. ASPEGIC 1000 [Concomitant]

REACTIONS (5)
  - ABASIA [None]
  - CYTOLYTIC HEPATITIS [None]
  - GENERAL PHYSICAL HEALTH DETERIORATION [None]
  - MUSCULOSKELETAL STIFFNESS [None]
  - PYREXIA [None]
